FAERS Safety Report 4796279-7 (Version None)
Quarter: 2005Q4

REPORT INFORMATION
  Report Type: 
  Country: None (occurrence: None)
  Receive Date: 20051007
  Receipt Date: 20050927
  Transmission Date: 20060501
  Serious: Yes (Other)
  Sender: FDA-Public Use
  Company Number: 2005135591

PATIENT
  Age: 71 Year
  Sex: Male
  Weight: 86.1834 kg

DRUGS (1)
  1. ZMAX [Suspect]
     Indication: BRONCHITIS
     Dosage: (SINGLE), ORAL
     Route: 048
     Dates: start: 20050920, end: 20050920

REACTIONS (6)
  - BURNING SENSATION [None]
  - DIZZINESS [None]
  - PRURITUS [None]
  - SWELLING FACE [None]
  - THROAT TIGHTNESS [None]
  - URTICARIA [None]
